FAERS Safety Report 5951194-8 (Version None)
Quarter: 2008Q4

REPORT INFORMATION
  Report Type: 
  Country: None (occurrence: None)
  Receive Date: 20081111
  Receipt Date: 20081111
  Transmission Date: 20090506
  Serious: Yes (Other)
  Sender: FDA-Public Use
  Company Number: None

PATIENT
  Age: 40 Year
  Sex: Female
  Weight: 79.3795 kg

DRUGS (1)
  1. LUMIGAN [Suspect]
     Indication: GLAUCOMA
     Dosage: 1 DROP EACH EYE AT BEDTIME 1 TIME PER DAY OTHER
     Route: 050
     Dates: start: 20080501, end: 20081104

REACTIONS (5)
  - DEPRESSION [None]
  - GAIT DISTURBANCE [None]
  - HYPERHIDROSIS [None]
  - PAIN IN EXTREMITY [None]
  - WEIGHT INCREASED [None]
